FAERS Safety Report 5099783-X (Version None)
Quarter: 2006Q3

REPORT INFORMATION
  Report Type: 
  Country: None (occurrence: None)
  Receive Date: 20060908
  Receipt Date: 20051010
  Transmission Date: 20061208
  Serious: Yes (Life-Threatening, Hospitalization)
  Sender: FDA-Public Use
  Company Number: 2005GB01962

PATIENT
  Age: 60 Year
  Sex: Male

DRUGS (3)
  1. LISINOPRIL [Suspect]
     Indication: HYPERTENSION
     Route: 048
  2. ASPIRIN [Concomitant]
     Route: 065
  3. RANITIDINE [Concomitant]
     Route: 065

REACTIONS (6)
  - ACUTE MYOCARDIAL INFARCTION [None]
  - ANGIONEUROTIC OEDEMA [None]
  - PNEUMOPERICARDIUM [None]
  - PNEUMOTHORAX [None]
  - POST PROCEDURAL COMPLICATION [None]
  - SUBCUTANEOUS EMPHYSEMA [None]
